FAERS Safety Report 13565441 (Version 2)
Quarter: 2017Q4

REPORT INFORMATION
  Report Type: Report from Study
  Country: US (occurrence: US)
  Receive Date: 20170519
  Receipt Date: 20171004
  Transmission Date: 20180320
  Serious: Yes (Hospitalization)
  Sender: FDA-Public Use
  Company Number: US-VIFOR (INTERNATIONAL) INC.-VIT-2017-05430

PATIENT
  Sex: Male

DRUGS (12)
  1. GLIPIZIDE. [Concomitant]
     Active Substance: GLIPIZIDE
  2. XARELTO [Concomitant]
     Active Substance: RIVAROXABAN
  3. DOXAZOSIN [Concomitant]
     Active Substance: DOXAZOSIN\DOXAZOSIN MESYLATE
  4. LANTUS [Concomitant]
     Active Substance: INSULIN GLARGINE
  5. DIOVAN [Concomitant]
     Active Substance: VALSARTAN
  6. LASIX [Concomitant]
     Active Substance: FUROSEMIDE
  7. VELTASSA [Suspect]
     Active Substance: PATIROMER
     Indication: HYPERKALAEMIA
     Dates: start: 20170508, end: 20170512
  8. CLONIDINE. [Concomitant]
     Active Substance: CLONIDINE
  9. METOPROLOL. [Concomitant]
     Active Substance: METOPROLOL
  10. PROCARDIA [Concomitant]
     Active Substance: NIFEDIPINE
  11. SIMVASTATIN. [Concomitant]
     Active Substance: SIMVASTATIN
  12. VELTASSA [Suspect]
     Active Substance: PATIROMER
     Route: 048
     Dates: start: 20170801

REACTIONS (3)
  - Constipation [Recovering/Resolving]
  - Vomiting [Unknown]
  - Heart rate irregular [Unknown]

NARRATIVE: CASE EVENT DATE: 2017
